FAERS Safety Report 7559235-1 (Version None)
Quarter: 2011Q2

REPORT INFORMATION
  Report Type: 
  Country: None (occurrence: None)
  Receive Date: 20110621
  Receipt Date: 20110620
  Transmission Date: 20111010
  Serious: Yes (Other)
  Sender: FDA-Public Use
  Company Number: HR-ROXANE LABORATORIES, INC.-2011-DE-03032GD

PATIENT
  Sex: Female

DRUGS (1)
  1. SERTRALINE HYDROCHLORIDE [Suspect]
     Indication: DYSTHYMIC DISORDER
     Dosage: 25 MG

REACTIONS (5)
  - FLUSHING [None]
  - ANGIOEDEMA [None]
  - TONGUE OEDEMA [None]
  - ASPHYXIA [None]
  - HYPERSENSITIVITY [None]
